FAERS Safety Report 4631603-7 (Version None)
Quarter: 2005Q2

REPORT INFORMATION
  Report Type: 
  Country: None (occurrence: None)
  Receive Date: 20050407
  Receipt Date: 20050329
  Transmission Date: 20051028
  Serious: No
  Sender: FDA-Public Use
  Company Number: 05H-087-0295597-00

PATIENT
  Age: 67 Year
  Sex: Male

DRUGS (4)
  1. FLUCONAZOLE IN SODIUM CHLORIDE INJECTION (FLUCONAZOLE) [Suspect]
     Indication: PNEUMONIA
  2. GALENIC /PANIPENEM/BETAMIPRON/ [Suspect]
     Indication: PNEUMONIA
  3. CYTARABINE [Concomitant]
  4. ACLARUBICIN HYDROCHLORIDE [Concomitant]

REACTIONS (3)
  - DRUG INTERACTION [None]
  - GENERAL PHYSICAL HEALTH DETERIORATION [None]
  - PANCREATITIS [None]
